FAERS Safety Report 5877274-3 (Version None)
Quarter: 2008Q3

REPORT INFORMATION
  Report Type: 
  Country: None (occurrence: None)
  Receive Date: 20080908
  Receipt Date: 20080821
  Transmission Date: 20090109
  Serious: Yes (Hospitalization)
  Sender: FDA-Public Use
  Company Number: 2008S1015227

PATIENT
  Age: 83 Year
  Sex: Female

DRUGS (10)
  1. ZOPICLONE MERCK (ZOPICLONE) [Suspect]
     Indication: INSOMNIA
     Dosage: 7.5 MG; COATED TABLET; DAILY;ORAL
     Route: 048
     Dates: start: 20080613, end: 20080613
  2. FLUOXETINE [Suspect]
     Indication: DEPRESSION
     Dosage: 20 MG;DISPERSIBLE TABLET;DAILY;ORAL
     Route: 048
     Dates: start: 20080613, end: 20080613
  3. IMOVANE (ZOPICLONE) [Suspect]
     Indication: INSOMNIA
     Dosage: 7.5 MG;COATED TABLET;ORAL; DAILY
     Route: 048
     Dates: end: 20080613
  4. PROZAC [Suspect]
     Indication: DEPRESSION
     Dosage: 20 MG; DISPERSIBLE TABLET;ORAL; DAILY
     Route: 048
     Dates: end: 20080613
  5. CACIT D3 (LEKOVIT CA) [Concomitant]
  6. ACETAMINOPHEN [Concomitant]
  7. OXYBUTYNINE (OXYBUTYNIN HYDROHLORIDE) [Concomitant]
  8. OMEPRAZOLE [Concomitant]
  9. PIPRAM (PIPEMIDIC ACID) [Concomitant]
  10. CERULYSE (XYLENE) [Concomitant]

REACTIONS (2)
  - ACCIDENTAL OVERDOSE [None]
  - SOMNOLENCE [None]
